FAERS Safety Report 5007567-3 (Version None)
Quarter: 2006Q2

REPORT INFORMATION
  Report Type: 
  Country: None (occurrence: None)
  Receive Date: 20060522
  Receipt Date: 20060517
  Transmission Date: 20061013
  Serious: Yes (Life-Threatening)
  Sender: FDA-Public Use
  Company Number: IT-BRISTOL-MYERS SQUIBB COMPANY-13381272

PATIENT
  Age: 59 Year
  Sex: Female

DRUGS (9)
  1. COUMADIN [Suspect]
     Indication: ATRIAL FIBRILLATION
     Dosage: 5 MG DAILY DEPENDING ON INR
     Route: 048
     Dates: start: 20021201, end: 20060517
  2. CISTOBIL [Suspect]
     Indication: SECONDARY HYPOTHYROIDISM
     Route: 048
     Dates: start: 20050501, end: 20050630
  3. MEXITIL [Suspect]
     Indication: ATRIAL FIBRILLATION
     Route: 048
     Dates: start: 20050801, end: 20060430
  4. LASIX [Concomitant]
  5. RYTHMOL [Concomitant]
  6. LOSAPREX [Concomitant]
  7. SEQUACOR [Concomitant]
  8. DELTACORTENE [Concomitant]
  9. RANITIDINE [Concomitant]

REACTIONS (4)
  - ARTERIOVENOUS FISTULA [None]
  - ASCITES [None]
  - HEPATIC LESION [None]
  - HEPATIC NEOPLASM [None]
